FAERS Safety Report 6337338-7 (Version None)
Quarter: 2009Q3

REPORT INFORMATION
  Report Type: 
  Country: None (occurrence: None)
  Receive Date: 20090828
  Receipt Date: 20090828
  Transmission Date: 20100115
  Serious: Yes (Life-Threatening, Hospitalization)
  Sender: FDA-Public Use
  Company Number: None

PATIENT
  Age: 46 Year
  Sex: Female
  Weight: 155 kg

DRUGS (2)
  1. HEPARIN [Suspect]
     Indication: THROMBOSIS PROPHYLAXIS
  2. LOVENOX [Suspect]
     Indication: THROMBOSIS PROPHYLAXIS

REACTIONS (4)
  - DYSPNOEA [None]
  - HAND AMPUTATION [None]
  - HEPARIN-INDUCED THROMBOCYTOPENIA [None]
  - PULMONARY EMBOLISM [None]
